FAERS Safety Report 9099336 (Version 1)
Quarter: 2013Q1

REPORT INFORMATION
  Report Type: Spontaneous
  Country: US (occurrence: US)
  Receive Date: 20130213
  Receipt Date: 20130213
  Transmission Date: 20140127
  Serious: No
  Sender: FDA-Public Use
  Company Number: US-ALLERGAN-1211072US

PATIENT
  Age: 31 Year
  Sex: 0

DRUGS (2)
  1. OZURDEX [Suspect]
     Indication: PRODUCT USED FOR UNKNOWN INDICATION
     Dosage: 0.7 MG, SINGLE
     Route: 031
     Dates: start: 20120713, end: 20120713
  2. CYCLOSPORINE [Concomitant]

REACTIONS (2)
  - Vision blurred [Recovered/Resolved]
  - Complication of device insertion [Unknown]
